FAERS Safety Report 10044060 (Version 1)
Quarter: 2014Q1

REPORT INFORMATION
  Report Type: Spontaneous
  Country: US (occurrence: US)
  Receive Date: 20140328
  Receipt Date: 20140328
  Transmission Date: 20141002
  Serious: No
  Sender: FDA-Public Use
  Company Number: US-MYLANLABS-2013S1024226

PATIENT
  Age: 84 Year
  Sex: Male

DRUGS (4)
  1. EMSAM (SELEGILINE TRANSDERMAL SYSTEM) [Suspect]
     Dosage: CHANGES QD
     Route: 062
     Dates: start: 201310
  2. EMSAM (SELEGILINE TRANSDERMAL SYSTEM) [Suspect]
     Route: 062
     Dates: start: 20131024, end: 20131025
  3. LYRICA [Concomitant]
  4. ALPRAZOLAM [Concomitant]

REACTIONS (2)
  - Incorrect dose administered [Recovered/Resolved]
  - Depression [Recovered/Resolved]
